FAERS Safety Report 9581432 (Version 1)
Quarter: 2013Q4

REPORT INFORMATION
  Report Type: Spontaneous
  Country: IT (occurrence: IT)
  Receive Date: 20131002
  Receipt Date: 20131002
  Transmission Date: 20140711
  Serious: Yes (Other)
  Sender: FDA-Public Use
  Company Number: PHHY2013IT109580

PATIENT
  Age: 75 Year
  Sex: Female

DRUGS (1)
  1. LETROZOLE [Suspect]
     Indication: BREAST CANCER
     Dosage: UNK UKN, UNK

REACTIONS (16)
  - Sjogren^s syndrome [Unknown]
  - Arthralgia [Unknown]
  - Dry mouth [Unknown]
  - Dysphonia [Unknown]
  - Mastication disorder [Unknown]
  - Thirst [Unknown]
  - Dry eye [Unknown]
  - Eye burns [Unknown]
  - Eye pruritus [Unknown]
  - Sensation of foreign body [Unknown]
  - Lymphocytic infiltration [Unknown]
  - Sialectasia [Unknown]
  - Fibrosis [Unknown]
  - Red blood cell sedimentation rate increased [Unknown]
  - C-reactive protein increased [Unknown]
  - Immunoglobulins increased [Unknown]
